FAERS Safety Report 9985626 (Version 1)
Quarter: 2014Q1

REPORT INFORMATION
  Report Type: Report from Study
  Country: US (occurrence: US)
  Receive Date: 20140307
  Receipt Date: 20140307
  Transmission Date: 20141002
  Serious: Yes (Hospitalization, Other)
  Sender: FDA-Public Use
  Company Number: US-BRISTOL-MYERS SQUIBB COMPANY-20352720

PATIENT
  Age: 63 Year
  Sex: Male
  Weight: 82.8 kg

DRUGS (1)
  1. IPILIMUMAB [Suspect]
     Indication: MALIGNANT MELANOMA
     Dosage: 1 DF= 3 MG/KG OR 10 MG/KG?828 MG?LAST ADMINISTERED DATE 28JAN14
     Route: 042
     Dates: start: 20140107

REACTIONS (5)
  - Delirium [Unknown]
  - Dehydration [Unknown]
  - Diarrhoea [Unknown]
  - Lipase increased [Unknown]
  - Hyponatraemia [Unknown]
